FAERS Safety Report 6883490-4 (Version None)
Quarter: 2010Q3

REPORT INFORMATION
  Report Type: 
  Country: None (occurrence: None)
  Receive Date: 20100729
  Receipt Date: 20100727
  Transmission Date: 20110219
  Serious: Yes (Disabling, Other)
  Sender: FDA-Public Use
  Company Number: US-MERCK-1007USA03438

PATIENT
  Age: 58 Year
  Sex: Female

DRUGS (5)
  1. FOSAMAX [Suspect]
     Route: 065
  2. FORTEO [Concomitant]
     Indication: OSTEOPOROSIS
     Route: 065
     Dates: start: 20100508, end: 20100528
  3. SYNTHROID [Concomitant]
     Route: 065
  4. VITAMIN D (UNSPECIFIED) [Concomitant]
     Route: 065
  5. CHOLESTEROL [Concomitant]
     Route: 065

REACTIONS (8)
  - ACTIVITIES OF DAILY LIVING IMPAIRED [None]
  - BACK PAIN [None]
  - DISABILITY [None]
  - INJECTION SITE ERYTHEMA [None]
  - ORAL INFECTION [None]
  - OSTEONECROSIS OF JAW [None]
  - PAIN IN EXTREMITY [None]
  - SCRATCH [None]
